FAERS Safety Report 21793449 (Version 1)
Quarter: 2022Q4

REPORT INFORMATION
  Report Type: Spontaneous
  Country: CZ (occurrence: CZ)
  Receive Date: 20221229
  Receipt Date: 20221229
  Transmission Date: 20230113
  Serious: Yes (Death, Life-Threatening, Hospitalization, Other)
  Sender: FDA-Public Use
  Company Number: None

PATIENT
  Age: 65 Year
  Sex: Female
  Weight: 94 kg

DRUGS (17)
  1. CISPLATIN [Suspect]
     Active Substance: CISPLATIN
     Indication: Lung neoplasm malignant
     Dates: start: 20220921, end: 20220921
  2. PEMBROLIZUMAB [Suspect]
     Active Substance: PEMBROLIZUMAB
     Indication: Lung neoplasm malignant
     Dates: start: 20220921, end: 20220921
  3. ALIMTA [Suspect]
     Active Substance: PEMETREXED DISODIUM
     Indication: Lung neoplasm malignant
     Dates: start: 20220921, end: 20220921
  4. BISULEPIN [Concomitant]
     Active Substance: BISULEPIN
  5. DIGOXIN [Concomitant]
     Active Substance: DIGOXIN
  6. INSULIN GLARGINE [Concomitant]
     Active Substance: INSULIN GLARGINE
  7. INSULIN ASPART [Concomitant]
     Active Substance: INSULIN ASPART
  8. MEDROL [Concomitant]
     Active Substance: METHYLPREDNISOLONE
  9. LEVOCETIRIZINE DIHYDROCHLORIDE [Concomitant]
     Active Substance: LEVOCETIRIZINE DIHYDROCHLORIDE
  10. TRAMADOL [Concomitant]
     Active Substance: TRAMADOL
  11. ELIQUIS [Concomitant]
     Active Substance: APIXABAN
  12. POTASSIUM CHLORIDE [Concomitant]
     Active Substance: POTASSIUM CHLORIDE
  13. FENOFIX [Concomitant]
  14. CONTROLOC [Concomitant]
     Active Substance: PANTOPRAZOLE SODIUM
  15. METOPROLOL [Concomitant]
     Active Substance: METOPROLOL
  16. MIRTAZAPINE [Concomitant]
     Active Substance: MIRTAZAPINE
  17. FOLIC ACID [Concomitant]
     Active Substance: FOLIC ACID

REACTIONS (1)
  - SJS-TEN overlap [Fatal]

NARRATIVE: CASE EVENT DATE: 20221105
